FAERS Safety Report 17488701 (Version 2)
Quarter: 2020Q1

REPORT INFORMATION
  Report Type: Spontaneous
  Country: US (occurrence: US)
  Receive Date: 20200303
  Receipt Date: 20200318
  Transmission Date: 20200409
  Serious: Yes (Hospitalization)
  Sender: FDA-Public Use
  Company Number: US-ARBOR PHARMACEUTICALS, LLC-US-2020ARB000173

PATIENT
  Age: 11 Year
  Sex: Female
  Weight: 48.98 kg

DRUGS (1)
  1. TRIPTODUR [Suspect]
     Active Substance: TRIPTORELIN
     Indication: PRECOCIOUS PUBERTY
     Dosage: 22.5 MG, SINGLE
     Route: 030
     Dates: start: 20200123, end: 20200123

REACTIONS (2)
  - Peritonitis [Unknown]
  - Appendicitis [Unknown]

NARRATIVE: CASE EVENT DATE: 20200219
